FAERS Safety Report 6718312-5 (Version None)
Quarter: 2010Q2

REPORT INFORMATION
  Report Type: 
  Country: None (occurrence: None)
  Receive Date: 20100505
  Receipt Date: 20100420
  Transmission Date: 20101027
  Serious: No
  Sender: FDA-Public Use
  Company Number: CIO09021096

PATIENT
  Age: 37 Year
  Sex: Female
  Weight: 77.1 kg

DRUGS (5)
  1. SINEX NASAL SPRAY OR MIST, VERSION UNKNOWN (CAMPHOR 0.067 MG, EUCALYPT [Suspect]
     Indication: SINUS CONGESTION
     Dosage: INTRANASAL
     Route: 045
  2. SINEX VAPOSPRAY 12 HOUR DECONGESTANT ULTRA FINE MIST (CAMPHOR, EUCALYP [Suspect]
     Indication: SINUS CONGESTION
     Dosage: INTRANASAL
     Route: 045
  3. SINEX VAPOSPRAY 12 HOUR DECONGESTANT ULTRA FINE MIST (CAMPHOR, EUCALYP [Suspect]
  4. AFRIN [Concomitant]
  5. PROPRANOLOL [Concomitant]

REACTIONS (32)
  - ABNORMAL SENSATION IN EYE [None]
  - ACUTE SINUSITIS [None]
  - CHEST DISCOMFORT [None]
  - CHRONIC SINUSITIS [None]
  - DIZZINESS [None]
  - EAR DISCOMFORT [None]
  - EAR INFECTION [None]
  - EAR PAIN [None]
  - EYE DISCHARGE [None]
  - EYE SWELLING [None]
  - FACIAL PAIN [None]
  - HEADACHE [None]
  - HEARING IMPAIRED [None]
  - INAPPROPRIATE SCHEDULE OF DRUG ADMINISTRATION [None]
  - INCORRECT DRUG ADMINISTRATION DURATION [None]
  - MIDDLE EAR EFFUSION [None]
  - NASAL CONGESTION [None]
  - NASAL MUCOSAL DISORDER [None]
  - NASAL SEPTUM DEVIATION [None]
  - NASAL SEPTUM PERFORATION [None]
  - NASAL TURBINATE HYPERTROPHY [None]
  - NASAL VESTIBULITIS [None]
  - OTITIS MEDIA [None]
  - POSTNASAL DRIP [None]
  - PROCEDURAL PAIN [None]
  - PYREXIA [None]
  - RHINITIS [None]
  - SCAB [None]
  - SINUS HEADACHE [None]
  - TINNITUS [None]
  - TOOTHACHE [None]
  - UPPER AIRWAY OBSTRUCTION [None]
